FAERS Safety Report 4316869-5 (Version None)
Quarter: 2004Q1

REPORT INFORMATION
  Report Type: 
  Country: None (occurrence: None)
  Receive Date: 20040309
  Receipt Date: 20031112
  Transmission Date: 20041129
  Serious: Yes (Other)
  Sender: FDA-Public Use
  Company Number: F03200300032

PATIENT
  Age: 60 Year
  Sex: Male
  Weight: 74.5 kg

DRUGS (4)
  1. OXALIPLATIN - SOLUTION [Suspect]
     Indication: COLORECTAL CANCER METASTATIC
     Dosage: 85 MG Q2W - INTRAVENOUS NOS
     Route: 042
     Dates: start: 20030101, end: 20030101
  2. PTK787/ZK 222584 VS PLACEBO [Suspect]
     Indication: COLORECTAL CANCER METASTATIC
     Dosage: ^TREATMENT PERIOD^ - ORAL
     Route: 048
     Dates: start: 20030613
  3. FLUOROURACIL [Concomitant]
  4. LEUCOVORIN CALCIUM [Concomitant]

REACTIONS (2)
  - BLINDNESS TRANSIENT [None]
  - NEUROPATHY [None]
